FAERS Safety Report 8469581-5 (Version None)
Quarter: 2012Q2

REPORT INFORMATION
  Report Type: 
  Country: None (occurrence: None)
  Receive Date: 20120626
  Receipt Date: 20120618
  Transmission Date: 20120825
  Serious: Yes (Death, Hospitalization, Other)
  Sender: FDA-Public Use
  Company Number: US-MPIJNJ-2011-04660

PATIENT
  Sex: Female
  Weight: 64 kg

DRUGS (2)
  1. VELCADE [Suspect]
     Indication: ACUTE MYELOID LEUKAEMIA
     Dosage: 1.7 MG, CYCLIC
     Route: 042
     Dates: start: 20110913, end: 20110923
  2. VORINOSTAT [Suspect]
     Indication: ACUTE MYELOID LEUKAEMIA
     Dosage: 300 MG, CYCLIC
     Route: 048
     Dates: start: 20110913, end: 20110926

REACTIONS (7)
  - SYNCOPE [None]
  - PNEUMONITIS [None]
  - ASTHENIA [None]
  - SMALL INTESTINAL OBSTRUCTION [None]
  - LUNG INFILTRATION [None]
  - DEHYDRATION [None]
  - ACUTE MYELOID LEUKAEMIA [None]
